FAERS Safety Report 8128993-X (Version None)
Quarter: 2012Q1

REPORT INFORMATION
  Report Type: 
  Country: None (occurrence: None)
  Receive Date: 20120210
  Receipt Date: 20120206
  Transmission Date: 20120608
  Serious: Yes (Death, Hospitalization)
  Sender: FDA-Public Use
  Company Number: IT-ELI_LILLY_AND_COMPANY-IT201106004024

PATIENT
  Sex: Male

DRUGS (2)
  1. ALIMTA [Suspect]
     Indication: LUNG ADENOCARCINOMA METASTATIC
     Dosage: 590 MG/TOTAL
     Route: 042
     Dates: start: 20110113
  2. ALIMTA [Suspect]
     Dosage: 600 MG, UNK
     Dates: start: 20110210

REACTIONS (10)
  - DEATH [None]
  - DEHYDRATION [None]
  - RASH [None]
  - ILEUS PARALYTIC [None]
  - ANAEMIA [None]
  - FEBRILE NEUTROPENIA [None]
  - DECREASED APPETITE [None]
  - ABDOMINAL DISTENSION [None]
  - DIARRHOEA [None]
  - THROMBOCYTOPENIA [None]
